FAERS Safety Report 4364481-4 (Version None)
Quarter: 2004Q2

REPORT INFORMATION
  Report Type: 
  Country: None (occurrence: None)
  Receive Date: 20040514
  Receipt Date: 20040326
  Transmission Date: 20050107
  Serious: Yes (Other)
  Sender: FDA-Public Use
  Company Number: 04-094

PATIENT
  Sex: Female

DRUGS (4)
  1. TORSEMIDE [Suspect]
     Dosage: 1 X DAILY
     Dates: start: 20040307
  2. MEPROPOL [Concomitant]
  3. SYNTHROID [Concomitant]
  4. LIPITOR [Concomitant]

REACTIONS (3)
  - PRURITUS [None]
  - RASH [None]
  - SWELLING [None]
